FAERS Safety Report 9238102 (Version 2)
Quarter: 2013Q2

REPORT INFORMATION
  Report Type: Spontaneous
  Country: US (occurrence: US)
  Receive Date: 20130418
  Receipt Date: 20130429
  Transmission Date: 20140414
  Serious: Yes (Other)
  Sender: FDA-Public Use
  Company Number: US-JNJFOC-20130407871

PATIENT
  Sex: 0

DRUGS (2)
  1. ETRAVIRINE [Suspect]
     Indication: ANTIRETROVIRAL THERAPY
     Route: 065
  2. PROPECIA [Interacting]
     Indication: ALOPECIA
     Route: 065

REACTIONS (2)
  - Drug interaction [Unknown]
  - Dihydrotestosterone increased [Unknown]
